FAERS Safety Report 4997908-5 (Version None)
Quarter: 2006Q2

REPORT INFORMATION
  Report Type: 
  Country: None (occurrence: None)
  Receive Date: 20060510
  Receipt Date: 20060501
  Transmission Date: 20061013
  Serious: Yes (Death, Other)
  Sender: FDA-Public Use
  Company Number: GB-JNJFOC-20060301934

PATIENT
  Age: 76 Year
  Sex: Female

DRUGS (4)
  1. REMICADE [Suspect]
     Indication: ERYTHRODERMIC PSORIASIS
     Dosage: 3 INFUSIONS
     Route: 042
  2. METHOTREXATE [Suspect]
     Indication: PUSTULAR PSORIASIS
     Route: 048
  3. ACITRETIN [Concomitant]
  4. HYDROXYUREA [Concomitant]

REACTIONS (2)
  - PNEUMONITIS [None]
  - T-CELL LYMPHOMA [None]
